FAERS Safety Report 13875209 (Version 6)
Quarter: 2018Q2

REPORT INFORMATION
  Report Type: Report from Study
  Country: ZA (occurrence: ZA)
  Receive Date: 20170816
  Receipt Date: 20180511
  Transmission Date: 20180711
  Serious: Yes (Death, Hospitalization, Disabling)
  Sender: FDA-Public Use
  Company Number: ZA-AMGEN-ZAFCT2017113514

PATIENT
  Age: 57 Year
  Sex: Male
  Weight: 72.3 kg

DRUGS (14)
  1. LASIX [Concomitant]
     Active Substance: FUROSEMIDE
     Dosage: 20 MG, UNK
     Route: 042
     Dates: start: 20170529, end: 20170711
  2. VITAMIN C [Concomitant]
     Active Substance: ASCORBIC ACID
     Dosage: 2 UNK, UNK
     Route: 048
     Dates: start: 20170712, end: 20170825
  3. PREGAMAL [Concomitant]
     Dosage: 1 UNK, UNK
     Route: 048
     Dates: start: 20170524, end: 20170825
  4. PERINDOPRIL [Concomitant]
     Active Substance: PERINDOPRIL
     Dosage: 4 MG, UNK
     Route: 048
     Dates: start: 2015, end: 20170825
  5. BIO ATENOLOL [Concomitant]
     Active Substance: ATENOLOL
     Dosage: 50 MG, UNK
     Route: 048
     Dates: start: 2015, end: 20170825
  6. FLUOXETINE [Concomitant]
     Active Substance: FLUOXETINE HYDROCHLORIDE
     Dosage: 20 MG, UNK
     Route: 048
     Dates: start: 20170529, end: 20170825
  7. LANSOLOC [Concomitant]
     Dosage: 30 MG, UNK
     Route: 047
     Dates: start: 20170524, end: 20170529
  8. CLOXACILLIN [Concomitant]
     Active Substance: CLOXACILLIN
     Dosage: 1 G, UNK
     Route: 048
     Dates: start: 20170613, end: 20170619
  9. ALLERGEX [Concomitant]
     Dosage: 4 MEQ, UNK
     Route: 048
     Dates: start: 20170529, end: 20170530
  10. TALIMOGENE LAHERPAREPVEC [Suspect]
     Active Substance: TALIMOGENE LAHERPAREPVEC
     Indication: MALIGNANT MELANOMA
     Dosage: UNK
     Route: 026
     Dates: start: 20170613, end: 20170712
  11. TRAMADOL. [Concomitant]
     Active Substance: TRAMADOL
     Dosage: 50 MG, UNK
     Route: 048
     Dates: start: 20170524, end: 20170825
  12. PEMBROLIZUMAB. [Suspect]
     Active Substance: PEMBROLIZUMAB
     Indication: MALIGNANT MELANOMA
     Dosage: 200 MG, UNK
     Route: 042
     Dates: start: 20170613, end: 20170712
  13. VITAMIN B12 [Concomitant]
     Active Substance: CYANOCOBALAMIN
     Dosage: 1 ML, UNK
     Route: 030
     Dates: start: 20170712, end: 20170712
  14. PANADO [Concomitant]
     Active Substance: ACETAMINOPHEN
     Dosage: 1 G, UNK
     Route: 048
     Dates: start: 20170524, end: 20170825

REACTIONS (3)
  - Malignant melanoma [Fatal]
  - Arteritis [Recovered/Resolved]
  - Encephalitis [Recovered/Resolved]

NARRATIVE: CASE EVENT DATE: 20170721
